FAERS Safety Report 4379805-1 (Version None)
Quarter: 2004Q2

REPORT INFORMATION
  Report Type: 
  Country: None (occurrence: None)
  Receive Date: 20040617
  Receipt Date: 20031219
  Transmission Date: 20050107
  Serious: Yes (Hospitalization)
  Sender: FDA-Public Use
  Company Number: BR-ROCHE-354526

PATIENT
  Age: 26 Year
  Sex: Male
  Weight: 48.5 kg

DRUGS (28)
  1. MYCOPHENOLATE MOFETIL [Suspect]
     Route: 048
     Dates: start: 20030827
  2. MYCOPHENOLATE MOFETIL [Suspect]
     Route: 048
  3. MYCOPHENOLATE MOFETIL [Suspect]
     Route: 048
     Dates: start: 20031028
  4. MYCOPHENOLATE MOFETIL [Suspect]
     Route: 048
     Dates: start: 20031120
  5. DACLIZUMAB [Suspect]
     Route: 042
     Dates: start: 20030827, end: 20030827
  6. DACLIZUMAB [Suspect]
     Route: 042
     Dates: start: 20030909, end: 20031008
  7. TACROLIMUS (AS COMPARATOR) [Suspect]
     Dosage: 5 MG MORNING. 2 MG AT NIGHT.
     Route: 048
     Dates: start: 20030827
  8. TACROLIMUS (AS COMPARATOR) [Suspect]
     Route: 048
  9. TACROLIMUS (AS COMPARATOR) [Suspect]
     Route: 048
     Dates: start: 20031028
  10. TACROLIMUS (AS COMPARATOR) [Suspect]
     Route: 048
     Dates: start: 20031103
  11. TACROLIMUS (AS COMPARATOR) [Suspect]
     Route: 048
     Dates: start: 20031202
  12. TACROLIMUS (AS COMPARATOR) [Suspect]
     Dosage: 4 MG MORNING. 3 MG AT NIGHT.
     Route: 048
     Dates: start: 20031212
  13. TACROLIMUS (AS COMPARATOR) [Suspect]
     Route: 048
     Dates: start: 20040513
  14. PREDNISONE [Suspect]
     Route: 048
     Dates: start: 20030830
  15. PREDNISONE [Suspect]
     Dosage: FREQENCY ^MID^.
     Route: 048
  16. PREDNISONE [Suspect]
     Dosage: FREQUENCY ^MID^.
     Route: 048
  17. PREDNISONE [Suspect]
     Dosage: FREQUENCY ^MID^.
     Route: 048
     Dates: start: 20031013
  18. PREDNISONE [Suspect]
     Dosage: FREQUENCY ^MID^.
     Route: 048
     Dates: start: 20031202
  19. RANITIDINE [Concomitant]
     Indication: DRUG USE FOR UNKNOWN INDICATION
     Route: 048
     Dates: start: 20030827
  20. OMEPRAZOLE [Concomitant]
     Dosage: FREQUENCY ^MID^.
     Route: 048
     Dates: start: 20030829
  21. NIFEDIPINE [Concomitant]
     Route: 048
     Dates: start: 20030828
  22. PROPRANOLOL [Concomitant]
     Route: 048
     Dates: start: 20030828
  23. CLONIDINE HCL [Concomitant]
     Route: 048
     Dates: start: 20030828
  24. CIPROFLOXACIN [Concomitant]
     Route: 048
     Dates: start: 20030908
  25. MINOXIDIL [Concomitant]
     Dosage: FREQUENCY ^MID^.
     Route: 048
     Dates: start: 20030914
  26. NYSTATINE [Concomitant]
     Route: 048
     Dates: start: 20030828
  27. HYDRALAZINE [Concomitant]
     Route: 048
     Dates: start: 20030912
  28. DIAZEPAM [Concomitant]
     Indication: DRUG USE FOR UNKNOWN INDICATION
     Dosage: FREQUENCY ^MID^.
     Route: 048
     Dates: start: 20030830

REACTIONS (8)
  - EXTRAVASATION OF URINE [None]
  - FISTULA [None]
  - GRAFT COMPLICATION [None]
  - PATHOGEN RESISTANCE [None]
  - PERINEPHRIC COLLECTION [None]
  - URINARY TRACT INFECTION [None]
  - URINARY TRACT INFECTION PSEUDOMONAL [None]
  - WOUND SECRETION [None]
